FAERS Safety Report 10086964 (Version 1)
Quarter: 2014Q2

REPORT INFORMATION
  Report Type: Spontaneous
  Country: US (occurrence: US)
  Receive Date: 20140418
  Receipt Date: 20140418
  Transmission Date: 20141212
  Serious: No
  Sender: FDA-Public Use
  Company Number: US-PFIZER INC-2014105598

PATIENT
  Age: 74 Year
  Sex: Female
  Weight: 50.79 kg

DRUGS (2)
  1. NICOTROL INHALER [Suspect]
     Indication: SMOKING CESSATION THERAPY
     Dosage: 10 MG, 8X/DAY
     Dates: start: 201404
  2. CRESTOR [Concomitant]
     Indication: BLOOD CHOLESTEROL INCREASED
     Dosage: UNK

REACTIONS (7)
  - Drug intolerance [Unknown]
  - Feeling abnormal [Unknown]
  - Muscle fatigue [Unknown]
  - Malaise [Unknown]
  - Somnolence [Recovered/Resolved]
  - Asthenia [Unknown]
  - Dizziness [Unknown]
